FAERS Safety Report 4640449-5 (Version None)
Quarter: 2005Q2

REPORT INFORMATION
  Report Type: 
  Country: None (occurrence: None)
  Receive Date: 20050419
  Receipt Date: 20050406
  Transmission Date: 20051028
  Serious: Yes (Other)
  Sender: FDA-Public Use
  Company Number: 2005057124

PATIENT
  Sex: Female
  Weight: 58.9676 kg

DRUGS (5)
  1. PROVERA TABLET (MEDROXYPROGESTERONE ACETATE) [Suspect]
     Indication: HORMONE REPLACEMENT THERAPY
     Dates: start: 19830101, end: 19980101
  2. CONJUGATED ESTROGENS [Suspect]
     Indication: HORMONE REPLACEMENT THERAPY
     Dates: start: 19830101, end: 19980101
  3. PROVELLA-14 (ESTROGENS CONJUGATED, MEDROXYPROGESTERONE ACETATE) [Suspect]
     Indication: HORMONE REPLACEMENT THERAPY
     Dates: start: 19990101, end: 20020101
  4. LEVOTHYROXINE SODIUM [Concomitant]
  5. ANASTROZOLE (ANASTROZOLE) [Concomitant]

REACTIONS (1)
  - BREAST CANCER FEMALE [None]
